FAERS Safety Report 9232080 (Version 1)
Quarter: 2013Q2

REPORT INFORMATION
  Report Type: Spontaneous
  Country: US (occurrence: US)
  Receive Date: 20130415
  Receipt Date: 20130415
  Transmission Date: 20140414
  Serious: No
  Sender: FDA-Public Use
  Company Number: US-PFIZER INC-2013113598

PATIENT
  Sex: 0

DRUGS (1)
  1. XALKORI [Suspect]
     Indication: LUNG ADENOCARCINOMA STAGE III
     Dosage: UNK, CYCLIC

REACTIONS (2)
  - Disease progression [Unknown]
  - Lung adenocarcinoma stage III [Unknown]
